FAERS Safety Report 19353163 (Version 3)
Quarter: 2021Q4

REPORT INFORMATION
  Report Type: Spontaneous
  Country: BR (occurrence: BR)
  Receive Date: 20210601
  Receipt Date: 20211130
  Transmission Date: 20220303
  Serious: Yes (Hospitalization)
  Sender: FDA-Public Use
  Company Number: BR-BIOMARINAP-BR-2021-136753

PATIENT
  Age: 32 Year
  Sex: Male
  Weight: 52 kg

DRUGS (3)
  1. ALDURAZYME [Suspect]
     Active Substance: LARONIDASE
     Indication: Mucopolysaccharidosis
     Dosage: 22 DOSAGE FORM, Q15D
     Route: 042
     Dates: start: 20050101, end: 2020
  2. ALDURAZYME [Suspect]
     Active Substance: LARONIDASE
     Dosage: 25 DOSAGE FORM, Q15D
     Route: 041
     Dates: start: 20201204, end: 2020
  3. ALDURAZYME [Suspect]
     Active Substance: LARONIDASE
     Dosage: 22 DOSAGE FORM, Q15D
     Route: 041
     Dates: start: 20210528

REACTIONS (5)
  - Illness [Recovered/Resolved]
  - Surgery [Recovering/Resolving]
  - Illness [Recovered/Resolved]
  - Constipation [Recovering/Resolving]
  - Inappropriate schedule of product administration [Unknown]

NARRATIVE: CASE EVENT DATE: 20050101
